FAERS Safety Report 4308105-0 (Version None)
Quarter: 2004Q1

REPORT INFORMATION
  Report Type: 
  Country: None (occurrence: None)
  Receive Date: 20040301
  Receipt Date: 20030512
  Transmission Date: 20041129
  Serious: No
  Sender: FDA-Public Use
  Company Number: US-BRISTOL-MYERS SQUIBB COMPANY-12275202

PATIENT
  Age: 60 Year
  Sex: Female
  Weight: 59 kg

DRUGS (11)
  1. METFORMIN HCL [Suspect]
     Indication: DIABETES MELLITUS
     Dosage: DOSE REGIMEN:  2 TABLETS IN THE MORNING, 3 IN THE EVENING
     Route: 048
     Dates: start: 20020101
  2. PRILOSEC [Concomitant]
  3. HYDROCHLOROTHIAZIDE [Concomitant]
  4. ACCUPRIL [Concomitant]
  5. PREMARIN [Concomitant]
  6. LEVOXYL [Concomitant]
  7. ALLEGRA [Concomitant]
  8. LIPITOR [Concomitant]
  9. ERY-TAB [Concomitant]
  10. MULTIVITAMIN [Concomitant]
  11. AVANDIA [Concomitant]

REACTIONS (2)
  - ASTHENIA [None]
  - BACK DISORDER [None]
